FAERS Safety Report 22214960 (Version 3)
Quarter: 2023Q2

REPORT INFORMATION
  Report Type: Report from Study
  Country: US (occurrence: US)
  Receive Date: 20230415
  Receipt Date: 20230504
  Transmission Date: 20230721
  Serious: Yes (Hospitalization, Other)
  Sender: FDA-Public Use
  Company Number: US-ABBVIE-4727974

PATIENT
  Age: 72 Year
  Sex: Female
  Weight: 118 kg

DRUGS (3)
  1. HUMIRA [Suspect]
     Active Substance: ADALIMUMAB
     Indication: Colitis ulcerative
     Dosage: FORM STRENGTH: 40
     Route: 058
     Dates: start: 2021, end: 202303
  2. HUMIRA [Suspect]
     Active Substance: ADALIMUMAB
     Dosage: CITRATE FREE?FIRST ADMIN DATE 2023
     Route: 058
  3. HUMIRA [Suspect]
     Active Substance: ADALIMUMAB
     Dosage: FORM STRENGTH: 40?LAST ADMIN DATE 2023
     Route: 058
     Dates: start: 20230425

REACTIONS (1)
  - Large intestine benign neoplasm [Recovering/Resolving]

NARRATIVE: CASE EVENT DATE: 20220801
